FAERS Safety Report 7047008-8 (Version None)
Quarter: 2010Q4

REPORT INFORMATION
  Report Type: 
  Country: None (occurrence: None)
  Receive Date: 20101015
  Receipt Date: 20101007
  Transmission Date: 20110411
  Serious: Yes (Death, Life-Threatening, Other)
  Sender: FDA-Public Use
  Company Number: JP-BAXTER-2010BH020301

PATIENT
  Age: 79 Year
  Sex: Male
  Weight: 46 kg

DRUGS (4)
  1. FEIBA [Suspect]
     Indication: HAEMOSTASIS
     Route: 042
     Dates: start: 20100706, end: 20100708
  2. FEIBA [Suspect]
     Route: 042
     Dates: start: 20100724, end: 20100725
  3. PREDONINE [Concomitant]
     Indication: ACQUIRED HAEMOPHILIA
     Route: 042
  4. ENDOXAN [Concomitant]
     Indication: ACQUIRED HAEMOPHILIA

REACTIONS (3)
  - DISSEMINATED INTRAVASCULAR COAGULATION [None]
  - MULTI-ORGAN FAILURE [None]
  - URTICARIA [None]
